FAERS Safety Report 6151314-9 (Version None)
Quarter: 2009Q2

REPORT INFORMATION
  Report Type: 
  Country: None (occurrence: None)
  Receive Date: 20090408
  Receipt Date: 20090330
  Transmission Date: 20091009
  Serious: Yes (Hospitalization)
  Sender: FDA-Public Use
  Company Number: 2008SP013188

PATIENT
  Age: 58 Year
  Sex: Female
  Weight: 57 kg

DRUGS (2)
  1. PEG-INTRON [Suspect]
     Indication: HEPATITIS C
     Dosage: 80 ;
     Dates: start: 20070620, end: 20070726
  2. COPEGUS [Suspect]
     Indication: HEPATITIS C
     Dates: start: 20070620, end: 20070726

REACTIONS (2)
  - ASTHENIA [None]
  - UTERINE LEIOMYOMA [None]
